FAERS Safety Report 22791662 (Version 2)
Quarter: 2023Q4

REPORT INFORMATION
  Report Type: Report from Study
  Country: FR (occurrence: FR)
  Receive Date: 20230807
  Receipt Date: 20231214
  Transmission Date: 20240110
  Serious: No
  Sender: FDA-Public Use
  Company Number: FR-SANDOZ-SDZ2023FR009099

PATIENT
  Age: 10 Year
  Sex: Male

DRUGS (1)
  1. OMNITROPE [Suspect]
     Active Substance: SOMATROPIN
     Indication: Product used for unknown indication
     Dosage: 1,2MG/DAY
     Route: 065

REACTIONS (4)
  - Hyperthermia [Unknown]
  - Abdominal pain [Unknown]
  - Injection site pain [Unknown]
  - Nasopharyngitis [Unknown]
